FAERS Safety Report 11933820 (Version 2)
Quarter: 2016Q1

REPORT INFORMATION
  Report Type: Report from Study
  Country: DE (occurrence: DE)
  Receive Date: 20160121
  Receipt Date: 20160309
  Transmission Date: 20160526
  Serious: Yes (Other)
  Sender: FDA-Public Use
  Company Number: DE-BAYER-2016-008056

PATIENT
  Age: 32 Year
  Sex: Female

DRUGS (1)
  1. BETAFERON [Suspect]
     Active Substance: INTERFERON BETA-1B
     Dosage: 250 ?G, QOD
     Route: 058
     Dates: start: 20120901, end: 20151130

REACTIONS (3)
  - Multiple sclerosis relapse [Unknown]
  - Gait disturbance [None]
  - Anti-interferon antibody positive [Recovered/Resolved]

NARRATIVE: CASE EVENT DATE: 201304
